FAERS Safety Report 7568932-3 (Version None)
Quarter: 2011Q2

REPORT INFORMATION
  Report Type: 
  Country: None (occurrence: None)
  Receive Date: 20110623
  Receipt Date: 20110608
  Transmission Date: 20111010
  Serious: Yes (Other)
  Sender: FDA-Public Use
  Company Number: US-JNJFOC-2011004052

PATIENT
  Age: 59 Year
  Sex: Female
  Weight: 59.88 kg

DRUGS (2)
  1. PRECISE EXTRA STRENGTH PAIN RELIEVING CREAM [Suspect]
     Indication: BACK PAIN
     Dosage: ENOUGH TO APPLY TO LOWERBACK AND BUTTOCK
     Route: 061
     Dates: start: 20110213, end: 20110214
  2. LEXAPRO [Concomitant]
     Indication: ANXIETY
     Dosage: DAILY DOSE TEXT: ONE DAILY
     Route: 048
     Dates: start: 20060101

REACTIONS (9)
  - APPLICATION SITE BURN [None]
  - APPLICATION SITE PAIN [None]
  - APPLICATION SITE VESICLES [None]
  - DRY SKIN [None]
  - APPLICATION SITE RASH [None]
  - APPLICATION SITE SCAB [None]
  - DISCOMFORT [None]
  - APPLICATION SITE ERYTHEMA [None]
  - APPLICATION SITE PRURITUS [None]
